FAERS Safety Report 5080314-5 (Version None)
Quarter: 2006Q3

REPORT INFORMATION
  Report Type: 
  Country: None (occurrence: None)
  Receive Date: 20060815
  Receipt Date: 20060810
  Transmission Date: 20061208
  Serious: Yes (Death, Other)
  Sender: FDA-Public Use
  Company Number: PHEH2006US10232

PATIENT
  Age: 82 Year
  Sex: Female
  Weight: 65.079 kg

DRUGS (6)
  1. LOTREL [Suspect]
     Route: 048
  2. ATENOLOL [Concomitant]
     Indication: HYPERTENSION
     Dates: start: 20060601
  3. AMBIEN [Concomitant]
  4. GLYBURIDE [Concomitant]
  5. LOVASTATIN [Concomitant]
  6. ARANESP [Concomitant]

REACTIONS (6)
  - ANAEMIA [None]
  - BLOOD CHOLESTEROL INCREASED [None]
  - FLUID OVERLOAD [None]
  - MYOCARDIAL ISCHAEMIA [None]
  - RENAL FAILURE ACUTE [None]
  - SEPSIS [None]
